FAERS Safety Report 10611100 (Version 1)
Quarter: 2014Q4

REPORT INFORMATION
  Report Type: Other
  Country: DE (occurrence: DE)
  Receive Date: 20141126
  Receipt Date: 20141126
  Transmission Date: 20150529
  Serious: Yes (Other)
  Sender: FDA-Public Use
  Company Number: DE-MYLANLABS-2014M1011336

PATIENT

DRUGS (5)
  1. METOPROLOL [Suspect]
     Active Substance: METOPROLOL
     Dosage: 95 MG, UNK
     Route: 048
  2. ALLOPURINOL. [Concomitant]
     Active Substance: ALLOPURINOL
     Dosage: 300 MG, UNK
     Route: 048
     Dates: end: 20140416
  3. RAMIPRIL. [Concomitant]
     Active Substance: RAMIPRIL
     Dosage: 2.5 MG, UNK
     Route: 048
     Dates: end: 20140422
  4. RISPERDAL [Suspect]
     Active Substance: RISPERIDONE
     Dosage: 0.5 MG, UNK
     Route: 048
     Dates: start: 20140409, end: 20140409
  5. RISPERDAL [Suspect]
     Active Substance: RISPERIDONE
     Dosage: 1 MG, UNK
     Route: 048
     Dates: start: 20140410, end: 20140410

REACTIONS (7)
  - Salivary hypersecretion [Recovered/Resolved]
  - Speech disorder [Recovered/Resolved]
  - Oromandibular dystonia [Recovered/Resolved]
  - Masked facies [Recovered/Resolved]
  - Parkinsonism [Recovered/Resolved]
  - Hypotonia [Recovered/Resolved]
  - Dysphagia [Recovered/Resolved]

NARRATIVE: CASE EVENT DATE: 20140411
